FAERS Safety Report 20878712 (Version 2)
Quarter: 2022Q2

REPORT INFORMATION
  Report Type: Spontaneous
  Country: US (occurrence: US)
  Receive Date: 20220526
  Receipt Date: 20220611
  Transmission Date: 20220720
  Serious: Yes (Hospitalization)
  Sender: FDA-Public Use
  Company Number: US-TEVA-2022-US-2039453

PATIENT
  Age: 64 Year
  Sex: Male

DRUGS (7)
  1. METHYLPREDNISOLONE [Suspect]
     Active Substance: METHYLPREDNISOLONE
     Indication: Hypoglycaemia
     Route: 065
  2. INSULIN GLARGINE [Suspect]
     Active Substance: INSULIN GLARGINE
     Indication: Type 2 diabetes mellitus
     Dosage: LATER, DOSE WAS INCREASED
     Route: 065
  3. INSULIN ASPART [Suspect]
     Active Substance: INSULIN ASPART
     Indication: Type 2 diabetes mellitus
     Dosage: LATER, DOSE WAS INCREASED
     Route: 065
  4. INSULIN NOS [Suspect]
     Active Substance: INSULIN NOS
     Indication: Type 2 diabetes mellitus
     Dosage: INTRAVENOUS INFUSION OF UP TO 60 UNITS/HOUR
     Route: 041
  5. DEXTROSE [Concomitant]
     Active Substance: DEXTROSE
     Indication: Hyperglycaemia
     Route: 065
  6. PLAQUENIL [Concomitant]
     Active Substance: HYDROXYCHLOROQUINE SULFATE
     Indication: Product used for unknown indication
     Dosage: 400 MILLIGRAM DAILY;
     Route: 065
  7. PREDNISONE [Concomitant]
     Active Substance: PREDNISONE
     Indication: Hypoglycaemia
     Dosage: 75 MILLIGRAM DAILY;
     Route: 065

REACTIONS (2)
  - Metabolic syndrome [Recovering/Resolving]
  - Hyperglycaemia [Recovering/Resolving]
